FAERS Safety Report 14502073 (Version 1)
Quarter: 2018Q1

REPORT INFORMATION
  Report Type: Spontaneous
  Country: US (occurrence: US)
  Receive Date: 20180208
  Receipt Date: 20180208
  Transmission Date: 20180509
  Serious: Yes (Death, Hospitalization, Other)
  Sender: FDA-Public Use
  Company Number: US-B.I. PHARMACEUTICALS,INC./RIDGEFIELD-2018-BI-006830

PATIENT
  Age: 63 Year
  Sex: Male

DRUGS (2)
  1. SPIRIVA [Suspect]
     Active Substance: TIOTROPIUM BROMIDE MONOHYDRATE
     Indication: DYSPNOEA
     Dosage: ONCE DAILY;  FORM STRENGTH: 18 MCG; ACTION(S) TAKEN WITH PRODUCT: NOT REPORTED
     Route: 055
  2. PRADAXA [Suspect]
     Active Substance: DABIGATRAN ETEXILATE MESYLATE
     Indication: CARDIAC DISORDER
     Dosage: TWICE DAILY;  FORM STRENGTH: 150 MG; ACTION(S) TAKEN WITH PRODUCT: NOT REPORTED
     Route: 048

REACTIONS (1)
  - Death [Fatal]

NARRATIVE: CASE EVENT DATE: 20170920
